FAERS Safety Report 25349400 (Version 1)
Quarter: 2025Q2

REPORT INFORMATION
  Report Type: Spontaneous
  Country: US (occurrence: US)
  Receive Date: 20250522
  Receipt Date: 20250522
  Transmission Date: 20250716
  Serious: No
  Sender: BRACCO
  Company Number: US-BRACCO-2024US03297

PATIENT
  Age: 34 Year
  Sex: Female

DRUGS (1)
  1. E-Z-PAQUE [Suspect]
     Active Substance: BARIUM SULFATE
     Indication: Digital radiogram
     Route: 048
     Dates: start: 20240506, end: 20240506

REACTIONS (1)
  - Adverse reaction [Recovered/Resolved]

NARRATIVE: CASE EVENT DATE: 20240506
